FAERS Safety Report 13737776 (Version 1)
Quarter: 2017Q3

REPORT INFORMATION
  Report Type: Spontaneous
  Country: US (occurrence: US)
  Receive Date: 20170710
  Receipt Date: 20170710
  Transmission Date: 20171127
  Serious: No
  Sender: FDA-Public Use
  Company Number: US-SAOL THERAPEUTICS-2016SAO00471

PATIENT
  Sex: Female

DRUGS (3)
  1. BACLOFEN. [Suspect]
     Active Substance: BACLOFEN
     Indication: SPINAL PAIN
     Route: 037
  2. UNSPECIFIED INTRATHECAL MEDICATIONS [Suspect]
     Active Substance: UNSPECIFIED INGREDIENT
     Route: 037
  3. FENTANYL. [Suspect]
     Active Substance: FENTANYL
     Route: 037

REACTIONS (3)
  - Device dislocation [Unknown]
  - Medical device site discomfort [Unknown]
  - Off label use [Unknown]

NARRATIVE: CASE EVENT DATE: 2014
